FAERS Safety Report 10279905 (Version 1)
Quarter: 2014Q3

REPORT INFORMATION
  Report Type: Spontaneous
  Country: SE (occurrence: None)
  Receive Date: 20140702
  Receipt Date: 20140702
  Transmission Date: 20150326
  Serious: Yes (Other)
  Sender: FDA-Public Use
  Company Number: 2014-19719

PATIENT
  Age: 85 Year
  Sex: Female

DRUGS (1)
  1. EYLEA [Suspect]
     Active Substance: AFLIBERCEPT
     Indication: AGE-RELATED MACULAR DEGENERATION
     Dosage: BILATERAL INJECTION
     Route: 031
     Dates: start: 20010409, end: 20140409

REACTIONS (7)
  - Blood culture positive [None]
  - Cerebrovascular accident [None]
  - Hemianopia homonymous [None]
  - C-reactive protein increased [None]
  - Uterine prolapse [None]
  - Pyrexia [None]
  - Cerebral haemorrhage [None]

NARRATIVE: CASE EVENT DATE: 20140504
